FAERS Safety Report 7538760-3 (Version None)
Quarter: 2011Q2

REPORT INFORMATION
  Report Type: 
  Country: None (occurrence: None)
  Receive Date: 20110610
  Receipt Date: 20090322
  Transmission Date: 20111010
  Serious: Yes (Death)
  Sender: FDA-Public Use
  Company Number: US-BAYER-200915971NA

PATIENT
  Age: 53 Year
  Sex: Male
  Weight: 124.72 kg

DRUGS (30)
  1. TRASYLOL [Suspect]
     Indication: CORONARY ARTERY BYPASS
     Dosage: 1 ML, UNK
     Route: 042
     Dates: start: 20070906, end: 20070906
  2. TRASYLOL [Suspect]
     Dosage: 50 ML/HR INFUSION, UNK
     Route: 042
     Dates: start: 20070906, end: 20070906
  3. LASIX [Concomitant]
     Dosage: 40 MG, QD
     Dates: start: 20070823
  4. NEOSYNEPHRINE [Concomitant]
     Dosage: DRIP
     Route: 042
     Dates: start: 20070907, end: 20070907
  5. POTASSIUM CHLORIDE [Concomitant]
     Dosage: 20 MEQ, QD
     Dates: start: 20070823
  6. VANCOMYCIN [Concomitant]
     Dosage: UNK
  7. LEVAQUIN [Concomitant]
  8. RED BLOOD CELLS [Concomitant]
     Dosage: 2 U, UNK
     Dates: start: 20070906
  9. BENAZEPRIL HYDROCHLORIDE [Concomitant]
     Dosage: 20 MG, QD
     Dates: start: 20070718, end: 20070812
  10. IMDUR [Concomitant]
     Dosage: 30 MG, QD
     Dates: start: 20070815
  11. NITROGLYCERIN [Concomitant]
     Dosage: DRIP
     Route: 042
     Dates: start: 20070907, end: 20070907
  12. PROPOFOL [Concomitant]
     Dosage: TITRATED
     Route: 042
     Dates: start: 20070907, end: 20070907
  13. HEPARIN [Concomitant]
     Dosage: 10, 000 UNITS
     Route: 042
     Dates: start: 20070927, end: 20070927
  14. FRESH FROZEN PLASMA [Concomitant]
     Dosage: 2 U, UNK
     Dates: start: 20070906
  15. LOTREL [Concomitant]
     Indication: HYPERTENSION
     Dosage: 1 DAILY
     Route: 048
  16. DICLOFENAC SODIUM [Concomitant]
     Dosage: UNK UNK, PRN
     Dates: start: 20040101, end: 20070701
  17. HYDROCHLOROTHIAZIDE [Concomitant]
     Dosage: 25 MG, QD
     Dates: start: 20070718, end: 20070812
  18. ZOCOR [Concomitant]
     Dosage: 80 MG, QD
     Dates: start: 20070827
  19. ALEVE (CAPLET) [Concomitant]
     Dosage: UNK UNK, PRN
     Dates: start: 20040101, end: 20070101
  20. TRASYLOL [Suspect]
     Dosage: 200 ML, UNK
     Route: 042
     Dates: start: 20070906, end: 20070906
  21. ACETYLSALICYLIC ACID SRT [Concomitant]
     Dosage: 325 MG, QD
  22. ZOSYN [Concomitant]
  23. LEVOPHED [Concomitant]
     Dosage: DRIP
     Route: 042
  24. PROTAMINE SULFATE [Concomitant]
     Dosage: 500 MG, UNK
     Route: 042
     Dates: start: 20070927, end: 20070927
  25. METOPROLOL SUCCINATE [Concomitant]
     Dosage: 50 MG, BID
     Dates: start: 20070813
  26. ISOSORBIDE [Concomitant]
  27. NITROSTAT [Concomitant]
     Dosage: 0.4 MG, PRN
     Dates: start: 20070815
  28. FENTANYL [Concomitant]
     Dosage: UNK
     Dates: start: 20070907, end: 20070907
  29. PAVULON [Concomitant]
     Dosage: UNK
     Dates: start: 20070907, end: 20070907
  30. LIDOCAINE [Concomitant]
     Dosage: 100 MG, UNK
     Route: 042
     Dates: start: 20070907, end: 20070907

REACTIONS (4)
  - EMOTIONAL DISTRESS [None]
  - INJURY [None]
  - ANXIETY [None]
  - RENAL FAILURE [None]
